FAERS Safety Report 22202049 (Version 7)
Quarter: 2024Q1

REPORT INFORMATION
  Report Type: Report from Study
  Country: BE (occurrence: BE)
  Receive Date: 20230412
  Receipt Date: 20240122
  Transmission Date: 20240410
  Serious: Yes (Hospitalization)
  Sender: FDA-Public Use
  Company Number: BE-ABBVIE-4724876

PATIENT
  Sex: Female
  Weight: 105 kg

DRUGS (6)
  1. CARBIDOPA\LEVODOPA [Suspect]
     Active Substance: CARBIDOPA\LEVODOPA
     Indication: Parkinson^s disease
     Dosage: MD 4.0 ML, CD 2.9 ML/H ED 1.7 ML REMAINING AT 16 HOURS
     Route: 050
     Dates: start: 20221024
  2. CARBIDOPA\LEVODOPA [Suspect]
     Active Substance: CARBIDOPA\LEVODOPA
     Route: 050
     Dates: start: 20210525
  3. CARBIDOPA\LEVODOPA [Suspect]
     Active Substance: CARBIDOPA\LEVODOPA
     Dosage: MD: 4.0 ML, CD: 2.8 ML/H, ED. 1.7 ML REMAINING AT 16 HOURS
     Route: 050
     Dates: start: 20230831, end: 20231226
  4. CARBIDOPA\LEVODOPA [Suspect]
     Active Substance: CARBIDOPA\LEVODOPA
     Dosage: MD: 4.0 ML, CD: 2.7 ML/H, ED: 1.7 ML REMAINS AT 16 HOURS
     Route: 050
     Dates: start: 20231226, end: 20240117
  5. CARBIDOPA\LEVODOPA [Suspect]
     Active Substance: CARBIDOPA\LEVODOPA
     Dosage: MD: 4.0 ML, CD: 2.8 ML/H, ED: 2.1 ML REMAINS AT 16 HOURS
     Route: 050
     Dates: start: 20240117
  6. BENSERAZIDE\LEVODOPA [Concomitant]
     Active Substance: BENSERAZIDE\LEVODOPA
     Indication: Product used for unknown indication
     Dosage: FREQUENCY TEXT: AT 4:30

REACTIONS (11)
  - Knee operation [Recovered/Resolved]
  - Dyskinesia [Not Recovered/Not Resolved]
  - Dyskinesia [Recovered/Resolved]
  - On and off phenomenon [Not Recovered/Not Resolved]
  - Therapeutic response shortened [Not Recovered/Not Resolved]
  - Nervousness [Not Recovered/Not Resolved]
  - Therapeutic product effect incomplete [Unknown]
  - Cognitive disorder [Unknown]
  - Freezing phenomenon [Unknown]
  - Depression [Unknown]
  - Unevaluable event [Unknown]

NARRATIVE: CASE EVENT DATE: 20230901
